FAERS Safety Report 14800574 (Version 1)
Quarter: 2018Q2

REPORT INFORMATION
  Report Type: Spontaneous
  Country: FR (occurrence: FR)
  Receive Date: 20180424
  Receipt Date: 20180424
  Transmission Date: 20180711
  Serious: Yes (Other)
  Sender: FDA-Public Use
  Company Number: FR-TEVA-2018-FR-885908

PATIENT
  Age: 71 Year
  Sex: Female

DRUGS (1)
  1. NAPROXENE SODIQUE [Suspect]
     Active Substance: NAPROXEN SODIUM
     Indication: TENDONITIS
     Route: 048

REACTIONS (2)
  - Face oedema [Recovered/Resolved]
  - Dyspnoea [Recovered/Resolved]
